FAERS Safety Report 26060235 (Version 1)
Quarter: 2025Q4

REPORT INFORMATION
  Report Type: Report from Study
  Country: US (occurrence: US)
  Receive Date: 20251118
  Receipt Date: 20251118
  Transmission Date: 20260118
  Serious: No
  Sender: DECIPHERA PHARMACEUTICALS
  Company Number: US-DECIPHERA PHARMACEUTICALS LLC-2025US001408

PATIENT
  Age: 25 Year
  Sex: Male
  Weight: 65.587 kg

DRUGS (2)
  1. ROMVIMZA [Suspect]
     Active Substance: VIMSELTINIB
     Indication: Joint dislocation
     Dosage: 30 MILLIGRAM, TWICE WEEKLY
     Dates: start: 20250624
  2. ROMVIMZA [Suspect]
     Active Substance: VIMSELTINIB
     Indication: Chemotherapy

REACTIONS (2)
  - Somnolence [Unknown]
  - Product use in unapproved indication [Unknown]

NARRATIVE: CASE EVENT DATE: 20250101
